FAERS Safety Report 10029435 (Version 1)
Quarter: 2014Q1

REPORT INFORMATION
  Report Type: Report from Study
  Country: JP (occurrence: JP)
  Receive Date: 20140322
  Receipt Date: 20140322
  Transmission Date: 20141002
  Serious: Yes (Other)
  Sender: FDA-Public Use
  Company Number: PHHY2014JP031581

PATIENT
  Age: 46 Year
  Sex: Male

DRUGS (39)
  1. LEPONEX / CLOZARIL [Suspect]
     Indication: SCHIZOPHRENIA
     Dosage: 12.5 MG, UNK
     Route: 048
     Dates: start: 20110713, end: 20110713
  2. LEPONEX / CLOZARIL [Suspect]
     Dosage: 25 MG, UNK
     Route: 048
     Dates: start: 20110714, end: 20110714
  3. LEPONEX / CLOZARIL [Suspect]
     Dosage: 50 MG, UNK
     Route: 048
     Dates: start: 20110715, end: 20110719
  4. LEPONEX / CLOZARIL [Suspect]
     Dosage: 75 MG, UNK
     Route: 048
     Dates: start: 20110720, end: 20110722
  5. LEPONEX / CLOZARIL [Suspect]
     Dosage: 100 MG, UNK
     Route: 048
     Dates: start: 20110723, end: 20110726
  6. LEPONEX / CLOZARIL [Suspect]
     Dosage: 125 MG, UNK
     Route: 048
     Dates: start: 20110727, end: 20110729
  7. LEPONEX / CLOZARIL [Suspect]
     Dosage: 75 MG, UNK
     Route: 048
     Dates: start: 20110802, end: 20110830
  8. LEPONEX / CLOZARIL [Suspect]
     Dosage: 100 MG, UNK
     Route: 048
     Dates: start: 20110831, end: 20110913
  9. LEPONEX / CLOZARIL [Suspect]
     Dosage: 125 MG, UNK
     Route: 048
     Dates: start: 20110914, end: 20111004
  10. LEPONEX / CLOZARIL [Suspect]
     Dosage: 150 MG, UNK
     Route: 048
     Dates: start: 20111005, end: 20111018
  11. LEPONEX / CLOZARIL [Suspect]
     Dosage: 175 MG, UNK
     Route: 048
     Dates: start: 20111019, end: 20111031
  12. LEPONEX / CLOZARIL [Suspect]
     Dosage: 200 MG, UNK
     Route: 048
     Dates: start: 20111101, end: 20111108
  13. LEPONEX / CLOZARIL [Suspect]
     Dosage: 225 MG, UNK
     Route: 048
     Dates: start: 20111109, end: 20111129
  14. LEPONEX / CLOZARIL [Suspect]
     Dosage: 250 MG, UNK
     Route: 048
     Dates: start: 20111130, end: 20111213
  15. LEPONEX / CLOZARIL [Suspect]
     Dosage: 275 MG, UNK
     Route: 048
     Dates: start: 20111214, end: 20120109
  16. LEPONEX / CLOZARIL [Suspect]
     Dosage: 300 MG, UNK
     Route: 048
     Dates: start: 20120110, end: 20120214
  17. LEPONEX / CLOZARIL [Suspect]
     Dosage: 150 MG, UNK
     Route: 048
     Dates: start: 20120215, end: 20120301
  18. LEPONEX / CLOZARIL [Suspect]
     Dosage: 175 MG, UNK
     Route: 048
     Dates: start: 20120302, end: 20120313
  19. LEPONEX / CLOZARIL [Suspect]
     Dosage: 200 MG, UNK
     Route: 048
     Dates: start: 20120314, end: 20120320
  20. LEPONEX / CLOZARIL [Suspect]
     Dosage: 225 MG, UNK
     Route: 048
     Dates: start: 20120321, end: 20120327
  21. LEPONEX / CLOZARIL [Suspect]
     Dosage: 250 MG, UNK
     Route: 048
     Dates: start: 20120328, end: 20120403
  22. LEPONEX / CLOZARIL [Suspect]
     Dosage: 275 MG, UNK
     Route: 048
     Dates: start: 20120404, end: 20120410
  23. LEPONEX / CLOZARIL [Suspect]
     Dosage: 300 MG, UNK
     Route: 048
     Dates: start: 20120411, end: 20120417
  24. LEPONEX / CLOZARIL [Suspect]
     Dosage: 325 MG, UNK
     Route: 048
     Dates: start: 20120418, end: 20120424
  25. LEPONEX / CLOZARIL [Suspect]
     Dosage: 350 MG, UNK
     Route: 048
     Dates: start: 20120425, end: 20120508
  26. LEPONEX / CLOZARIL [Suspect]
     Dosage: 375 MG, UNK
     Route: 048
     Dates: start: 20120509, end: 20120612
  27. LEPONEX / CLOZARIL [Suspect]
     Dosage: 400 MG, UNK
     Route: 048
     Dates: start: 20120613, end: 20120731
  28. LEPONEX / CLOZARIL [Suspect]
     Dosage: 425 MG, UNK
     Route: 048
     Dates: start: 20120801, end: 20120814
  29. LEPONEX / CLOZARIL [Suspect]
     Dosage: 450 MG, UNK
     Route: 048
     Dates: start: 20120815, end: 20120911
  30. LEPONEX / CLOZARIL [Suspect]
     Dosage: 475 MG, UNK
     Route: 048
     Dates: start: 20120912, end: 20120925
  31. LEPONEX / CLOZARIL [Suspect]
     Dosage: 500 MG, UNK
     Route: 048
     Dates: start: 20120926, end: 20121120
  32. LEPONEX / CLOZARIL [Suspect]
     Dosage: 525 MG, UNK
     Route: 048
     Dates: start: 20121121, end: 20121204
  33. LEPONEX / CLOZARIL [Suspect]
     Dosage: 550 MG, UNK
     Route: 048
     Dates: start: 20121205, end: 20130219
  34. LEPONEX / CLOZARIL [Suspect]
     Dosage: 600 MG, UNK
     Route: 048
     Dates: start: 20130220
  35. DIOVAN [Concomitant]
     Dosage: 40 MG, UNK
     Route: 048
     Dates: start: 20130325
  36. ADALAT [Concomitant]
     Dosage: 10 MG, UNK
     Route: 048
     Dates: start: 20110713
  37. TENORMIN [Concomitant]
     Dosage: 50 MG, UNK
     Route: 048
     Dates: start: 20110713, end: 20130319
  38. EVIPROSTAT [Concomitant]
     Dosage: 2 DF, UNK
     Route: 048
     Dates: start: 20111107, end: 20120522
  39. HACHIMIJIOGAN [Concomitant]
     Dosage: 7.5 MG, UNK
     Route: 048
     Dates: start: 20111107, end: 20120605

REACTIONS (5)
  - Weight decreased [Not Recovered/Not Resolved]
  - Blood pressure diastolic decreased [Unknown]
  - Neutrophil count increased [Unknown]
  - Blood pressure systolic increased [Unknown]
  - Heart rate increased [Unknown]
